FAERS Safety Report 19815489 (Version 2)
Quarter: 2021Q3

REPORT INFORMATION
  Report Type: Report from Study
  Country: IE (occurrence: IE)
  Receive Date: 20210910
  Receipt Date: 20210927
  Transmission Date: 20211014
  Serious: Yes (Other)
  Sender: FDA-Public Use
  Company Number: IE-MYLANLABS-2021M1060378

PATIENT
  Age: 44 Year
  Sex: Male

DRUGS (1)
  1. BRABIO [Suspect]
     Active Substance: GLATIRAMER ACETATE
     Indication: MULTIPLE SCLEROSIS
     Dosage: 40 MILLIGRAM, 3XW (3 TIMES WEEKLY)
     Route: 058
     Dates: start: 20210524

REACTIONS (1)
  - Multiple sclerosis [Recovered/Resolved]
